FAERS Safety Report 16953815 (Version 2)
Quarter: 2019Q4

REPORT INFORMATION
  Report Type: Report from Study
  Country: FR (occurrence: FR)
  Receive Date: 20191023
  Receipt Date: 20191231
  Transmission Date: 20200122
  Serious: Yes (Other)
  Sender: FDA-Public Use
  Company Number: FR-THERATECHNOLOGIES INC.-2019-THE-IBA-000035

PATIENT

DRUGS (1)
  1. TROGARZO [Suspect]
     Active Substance: IBALIZUMAB-UIYK
     Indication: PRODUCT USED FOR UNKNOWN INDICATION
     Dosage: UNK
     Route: 042
     Dates: start: 20191002

REACTIONS (2)
  - Convulsive threshold lowered [Unknown]
  - Myoclonus [Unknown]

NARRATIVE: CASE EVENT DATE: 20191002
